FAERS Safety Report 19941720 (Version 2)
Quarter: 2021Q4

REPORT INFORMATION
  Report Type: Report from Study
  Country: GB (occurrence: GB)
  Receive Date: 20211011
  Receipt Date: 20211228
  Transmission Date: 20220303
  Serious: Yes (Hospitalization)
  Sender: FDA-Public Use
  Company Number: GB-BAXTER-2021BAX031417

PATIENT
  Age: 75 Year
  Sex: Female

DRUGS (28)
  1. SYNTHAMIN [Suspect]
     Active Substance: AMINO ACIDS
     Indication: Parenteral nutrition
     Dosage: ROUTE: CVAD
     Route: 042
     Dates: start: 20210929, end: 20210930
  2. SYNTHAMIN [Suspect]
     Active Substance: AMINO ACIDS
     Dosage: DOSE RE-INTRODUCED
     Route: 042
  3. DEXTROSE [Suspect]
     Active Substance: DEXTROSE
     Indication: Parenteral nutrition
     Dosage: ROUTE: CVAD
     Route: 042
     Dates: start: 20210929, end: 20210930
  4. DEXTROSE [Suspect]
     Active Substance: DEXTROSE
     Dosage: DOSE REINTRODUCED
     Route: 042
  5. WATER FOR INJECTION [Suspect]
     Active Substance: WATER
     Indication: Parenteral nutrition
     Dosage: ROUTE: CVAD
     Route: 042
     Dates: start: 20210929, end: 20210930
  6. WATER FOR INJECTION [Suspect]
     Active Substance: WATER
     Dosage: DOSE RE-INTRODUCED
     Route: 042
  7. IRON\MINERALS\POTASSIUM IOD\SODIUM FLUORIDE\SODIUM MOLYBDATE\SODIUM SE [Suspect]
     Active Substance: IRON\MINERALS\POTASSIUM IOD\SODIUM FLUORIDE\SODIUM MOLYBDATE\SODIUM SELENITE\ZINC
     Indication: Parenteral nutrition
     Dosage: ROUTE: CVAD
     Route: 042
     Dates: start: 20210929, end: 20210930
  8. IRON\MINERALS\POTASSIUM IOD\SODIUM FLUORIDE\SODIUM MOLYBDATE\SODIUM SE [Suspect]
     Active Substance: IRON\MINERALS\POTASSIUM IOD\SODIUM FLUORIDE\SODIUM MOLYBDATE\SODIUM SELENITE\ZINC
     Dosage: DOSE RE-INTRODUCED
     Route: 042
  9. WATER [Suspect]
     Active Substance: WATER
     Indication: Parenteral nutrition
     Dosage: ROUTE: CVAD
     Route: 042
     Dates: start: 20210929, end: 20210930
  10. WATER [Suspect]
     Active Substance: WATER
     Dosage: DOSE RE-INTRODUCED
     Route: 042
  11. SMOFLIPID [Suspect]
     Active Substance: FISH OIL\MEDIUM-CHAIN TRIGLYCERIDES\OLIVE OIL\SOYBEAN OIL
     Indication: Parenteral nutrition
     Dosage: ROUTE: CVAD
     Route: 042
     Dates: start: 20210929, end: 20210930
  12. SMOFLIPID [Suspect]
     Active Substance: FISH OIL\MEDIUM-CHAIN TRIGLYCERIDES\OLIVE OIL\SOYBEAN OIL
     Dosage: DOSE RE-INTRODUCED
     Route: 042
  13. SODIUM CHLORIDE [Suspect]
     Active Substance: SODIUM CHLORIDE
     Indication: Parenteral nutrition
     Dosage: ROUTE: CVAD
     Route: 042
     Dates: start: 20210929, end: 20210930
  14. SODIUM CHLORIDE [Suspect]
     Active Substance: SODIUM CHLORIDE
     Dosage: DOSE RE-INTRODUCED
     Route: 042
  15. POTASSIUM CHLORIDE [Suspect]
     Active Substance: POTASSIUM CHLORIDE
     Indication: Parenteral nutrition
     Dosage: ROUTE: CVAD
     Route: 042
     Dates: start: 20210929, end: 20210930
  16. POTASSIUM CHLORIDE [Suspect]
     Active Substance: POTASSIUM CHLORIDE
     Dosage: DOSE RE-INTRODUCED
     Route: 042
  17. CALCIUM CHLORIDE [Suspect]
     Active Substance: CALCIUM CHLORIDE
     Indication: Parenteral nutrition
     Dosage: 1 MMOL/ML?ROUTE: CVAD
     Route: 042
     Dates: start: 20210929, end: 20210930
  18. CALCIUM CHLORIDE [Suspect]
     Active Substance: CALCIUM CHLORIDE
     Dosage: DOSE RE-INTRODUCED
     Route: 042
  19. MAGNESIUM SULFATE [Suspect]
     Active Substance: MAGNESIUM SULFATE
     Indication: Parenteral nutrition
     Dosage: BAG?ROUTE: CVAD
     Route: 042
     Dates: start: 20210929, end: 20210930
  20. MAGNESIUM SULFATE [Suspect]
     Active Substance: MAGNESIUM SULFATE
     Dosage: DOSE RE-INTRODUCED
     Route: 042
  21. ERGOCALCIFEROL\PHYTONADIONE\RETINOL\TOCOPHEROL [Suspect]
     Active Substance: ERGOCALCIFEROL\PHYTONADIONE\RETINOL\TOCOPHEROL
     Indication: Parenteral nutrition
     Dosage: ROUTE: CVAD
     Route: 042
     Dates: start: 20210929, end: 20210930
  22. ERGOCALCIFEROL\PHYTONADIONE\RETINOL\TOCOPHEROL [Suspect]
     Active Substance: ERGOCALCIFEROL\PHYTONADIONE\RETINOL\TOCOPHEROL
     Dosage: DOSE RE-INTRODUCED
     Route: 042
  23. VITAMINS [Suspect]
     Active Substance: VITAMINS
     Indication: Parenteral nutrition
     Dosage: ROUTE: CVAD
     Route: 042
     Dates: start: 20210929, end: 20210930
  24. VITAMINS [Suspect]
     Active Substance: VITAMINS
     Dosage: DOSE RE-INTRODUCED
     Route: 042
  25. ASCORBIC ACID [Suspect]
     Active Substance: ASCORBIC ACID
     Indication: Parenteral nutrition
     Dosage: ROUTE: CVAD
     Route: 042
     Dates: start: 20210929, end: 20210930
  26. ASCORBIC ACID [Suspect]
     Active Substance: ASCORBIC ACID
     Dosage: DOSE RE-INTRODUCED
     Route: 042
  27. SODIUM GLYCEROPHOSPHATE [Suspect]
     Active Substance: SODIUM GLYCEROPHOSPHATE
     Indication: Parenteral nutrition
     Dosage: ROUTE: CVAD
     Route: 042
     Dates: start: 20210929, end: 20210930
  28. SODIUM GLYCEROPHOSPHATE [Suspect]
     Active Substance: SODIUM GLYCEROPHOSPHATE
     Dosage: DOSE RE-INTRODUCED
     Route: 042

REACTIONS (3)
  - Nausea [Not Recovered/Not Resolved]
  - Pyrexia [Not Recovered/Not Resolved]
  - Chills [Not Recovered/Not Resolved]

NARRATIVE: CASE EVENT DATE: 20210929
